FAERS Safety Report 9869027 (Version 5)
Quarter: 2016Q2

REPORT INFORMATION
  Report Type: Spontaneous
  Country: CA (occurrence: CA)
  Receive Date: 20140205
  Receipt Date: 20160614
  Transmission Date: 20160815
  Serious: Yes (Hospitalization, Other)
  Sender: FDA-Public Use
  Company Number: CA-ROCHE-1342678

PATIENT
  Age: 25 Year
  Sex: Male
  Weight: 95 kg

DRUGS (10)
  1. XOLAIR [Suspect]
     Active Substance: OMALIZUMAB
     Dosage: 300 MG, BIW
     Route: 058
     Dates: start: 20130110
  2. XOLAIR [Suspect]
     Active Substance: OMALIZUMAB
     Dosage: UNK
     Route: 058
     Dates: start: 2015
  3. SYMBICORT [Concomitant]
     Active Substance: BUDESONIDE\FORMOTEROL FUMARATE DIHYDRATE
     Indication: ASTHMA
     Route: 065
  4. SINGULAIR [Concomitant]
     Active Substance: MONTELUKAST SODIUM
     Indication: ASTHMA
     Route: 065
  5. PREDNISONE. [Concomitant]
     Active Substance: PREDNISONE
     Indication: ASTHMA
     Dosage: UNK
     Route: 065
     Dates: start: 20150427
  6. PREDNISONE. [Concomitant]
     Active Substance: PREDNISONE
     Dosage: 50 MG, UNK (FOR 7 DAYS)
     Route: 065
     Dates: start: 20150427
  7. XOLAIR [Suspect]
     Active Substance: OMALIZUMAB
     Dosage: UNK
     Route: 058
     Dates: start: 20150824
  8. AIROMIR [Concomitant]
     Active Substance: ALBUTEROL SULFATE
     Indication: PRODUCT USED FOR UNKNOWN INDICATION
     Route: 065
  9. XOLAIR [Suspect]
     Active Substance: OMALIZUMAB
     Indication: ASTHMA
     Dosage: 375 MG, BIW
     Route: 058
     Dates: start: 20120815
  10. PREDNISONE. [Concomitant]
     Active Substance: PREDNISONE
     Dosage: 25 MG, UNK (FOR 7 DAYS)
     Route: 065
     Dates: start: 20150427

REACTIONS (15)
  - Hypoventilation [Unknown]
  - Lower respiratory tract infection [Unknown]
  - Tympanic membrane perforation [Unknown]
  - Weight increased [Unknown]
  - Diarrhoea [Unknown]
  - Asthma [Recovering/Resolving]
  - Fatigue [Unknown]
  - Asthenia [Unknown]
  - Musculoskeletal discomfort [Unknown]
  - Anxiety [Not Recovered/Not Resolved]
  - Anaphylactic shock [Unknown]
  - Vertebral foraminal stenosis [Unknown]
  - Influenza [Unknown]
  - Hypoaesthesia [Unknown]
  - Oral infection [Unknown]

NARRATIVE: CASE EVENT DATE: 20121008
